FAERS Safety Report 25242003 (Version 1)
Quarter: 2025Q2

REPORT INFORMATION
  Report Type: Spontaneous
  Country: CA (occurrence: CA)
  Receive Date: 20250426
  Receipt Date: 20250426
  Transmission Date: 20250716
  Serious: Yes (Other)
  Sender: CELLTRION
  Company Number: CA-CELLTRION INC.-2024CA013281

PATIENT

DRUGS (48)
  1. TRUXIMA [Suspect]
     Active Substance: RITUXIMAB-ABBS
     Indication: Rheumatoid arthritis
     Route: 042
     Dates: start: 20240712
  2. TRUXIMA [Suspect]
     Active Substance: RITUXIMAB-ABBS
     Route: 042
     Dates: start: 20240712
  3. TRUXIMA [Suspect]
     Active Substance: RITUXIMAB-ABBS
     Route: 042
     Dates: start: 20240712
  4. TRUXIMA [Suspect]
     Active Substance: RITUXIMAB-ABBS
     Route: 042
     Dates: start: 20240712
  5. TRUXIMA [Suspect]
     Active Substance: RITUXIMAB-ABBS
     Route: 042
     Dates: start: 20250409
  6. ACETAMINOPHEN [Concomitant]
     Active Substance: ACETAMINOPHEN
     Indication: Premedication
  7. DIPHENHYDRAMINE [Concomitant]
     Active Substance: DIPHENHYDRAMINE
     Indication: Premedication
  8. METHYLPREDNISOLONE [Concomitant]
     Active Substance: METHYLPREDNISOLONE
     Indication: Premedication
  9. PREDNISONE [Concomitant]
     Active Substance: PREDNISONE
     Route: 048
  10. ROSUVASTATIN [Concomitant]
     Active Substance: ROSUVASTATIN
     Route: 048
  11. ROSUVASTATIN [Concomitant]
     Active Substance: ROSUVASTATIN
     Route: 048
  12. DOXAZOSIN [Concomitant]
     Active Substance: DOXAZOSIN MESYLATE
     Route: 048
  13. IRBESARTAN [Concomitant]
     Active Substance: IRBESARTAN
     Route: 048
  14. SYNTHROID [Concomitant]
     Active Substance: LEVOTHYROXINE SODIUM
     Route: 048
  15. CYMBALTA [Concomitant]
     Active Substance: DULOXETINE HYDROCHLORIDE
     Route: 048
  16. CYMBALTA [Concomitant]
     Active Substance: DULOXETINE HYDROCHLORIDE
     Route: 048
  17. RABEPRAZOLE [Concomitant]
     Active Substance: RABEPRAZOLE
     Route: 048
  18. PRAMIPEXOLE [Concomitant]
     Active Substance: PRAMIPEXOLE
     Route: 048
  19. PRAMIPEXOLE [Concomitant]
     Active Substance: PRAMIPEXOLE
     Route: 048
  20. RANITIDINE [Concomitant]
     Active Substance: RANITIDINE
     Route: 048
  21. BETADERM [Concomitant]
     Active Substance: BETAMETHASONE VALERATE
     Indication: Fungal infection
     Route: 061
  22. ASPIRIN [Concomitant]
     Active Substance: ASPIRIN
     Route: 048
  23. MINERALS\VITAMINS [Concomitant]
     Active Substance: MINERALS\VITAMINS
     Route: 048
  24. MINERALS\VITAMINS [Concomitant]
     Active Substance: MINERALS\VITAMINS
     Route: 048
  25. VITAMIN D3 [Concomitant]
     Active Substance: CHOLECALCIFEROL
     Route: 048
  26. VITAMIN D3 [Concomitant]
     Active Substance: CHOLECALCIFEROL
     Route: 048
  27. CYANOCOBALAMIN [Concomitant]
     Active Substance: CYANOCOBALAMIN
  28. VITAMIN B2 [Concomitant]
     Active Substance: RIBOFLAVIN
  29. VITAMIN B2 [Concomitant]
     Active Substance: RIBOFLAVIN
     Route: 048
  30. VITAMIN B2 [Concomitant]
     Active Substance: RIBOFLAVIN
     Route: 048
  31. MAGNESIUM CITRATE [Concomitant]
     Active Substance: MAGNESIUM CITRATE
  32. MAGNESIUM CITRATE [Concomitant]
     Active Substance: MAGNESIUM CITRATE
     Route: 048
  33. CALCIUM\CHOLECALCIFEROL [Concomitant]
     Active Substance: CALCIUM\CHOLECALCIFEROL
  34. CALCIUM\CHOLECALCIFEROL [Concomitant]
     Active Substance: CALCIUM\CHOLECALCIFEROL
  35. HERBALS\TURMERIC [Concomitant]
     Active Substance: HERBALS\TURMERIC
     Route: 048
  36. ZADITOR [Concomitant]
     Active Substance: KETOTIFEN FUMARATE
  37. SYSTANE (HYPROMELLOSE 2910 (4000 MPA.S)) [Concomitant]
     Active Substance: HYPROMELLOSE 2910 (4000 MPA.S)
  38. OCUNOX [OXYBUPROCAINE HYDROCHLORIDE] [Concomitant]
  39. OCUNOX [OXYBUPROCAINE HYDROCHLORIDE] [Concomitant]
  40. OZEMPIC [Concomitant]
     Active Substance: SEMAGLUTIDE
     Dosage: 0.25 MG SC WEEKLY
     Route: 058
  41. PRAZOSIN [Concomitant]
     Active Substance: PRAZOSIN
     Route: 048
  42. FUROSEMIDE [Concomitant]
     Active Substance: FUROSEMIDE
     Route: 048
  43. CLOTRIMAZOLE [Concomitant]
     Active Substance: CLOTRIMAZOLE
  44. LAMISIL [Concomitant]
     Active Substance: TERBINAFINE HYDROCHLORIDE
  45. CALCIUM CITRATE\CHOLECALCIFEROL [Concomitant]
     Active Substance: CALCIUM CITRATE\CHOLECALCIFEROL
     Route: 048
  46. SYSTANE COMPLETE [Concomitant]
     Active Substance: PROPYLENE GLYCOL
  47. HYDROMORPHONE [Concomitant]
     Active Substance: HYDROMORPHONE
     Route: 048
  48. BETADERM [Concomitant]
     Active Substance: BETAMETHASONE VALERATE
     Indication: Fungal infection

REACTIONS (27)
  - Headache [Recovering/Resolving]
  - Hypertension [Unknown]
  - Arthralgia [Unknown]
  - Pain [Unknown]
  - Vertigo [Unknown]
  - Decreased appetite [Unknown]
  - Feeling cold [Unknown]
  - Pain in extremity [Not Recovered/Not Resolved]
  - Feeling hot [Unknown]
  - Peripheral swelling [Not Recovered/Not Resolved]
  - Eye pain [Recovering/Resolving]
  - Dysstasia [Unknown]
  - Ocular discomfort [Unknown]
  - Ill-defined disorder [Unknown]
  - Insomnia [Unknown]
  - Pain in extremity [Unknown]
  - Blood pressure systolic increased [Unknown]
  - Nausea [Recovering/Resolving]
  - Headache [Unknown]
  - Viral infection [Recovered/Resolved with Sequelae]
  - Balance disorder [Unknown]
  - Dizziness [Unknown]
  - Headache [Unknown]
  - Fatigue [Unknown]
  - Asthenia [Unknown]
  - Therapeutic response shortened [Unknown]
  - Intentional dose omission [Unknown]

NARRATIVE: CASE EVENT DATE: 20240101
